FAERS Safety Report 25903550 (Version 1)
Quarter: 2025Q4

REPORT INFORMATION
  Report Type: Report from Study
  Country: BR (occurrence: BR)
  Receive Date: 20251010
  Receipt Date: 20251010
  Transmission Date: 20260119
  Serious: Yes (Other)
  Sender: GLAXOSMITHKLINE
  Company Number: BR-GLAXOSMITHKLINE INC-BR2025090995

PATIENT
  Sex: Female
  Weight: 70 kg

DRUGS (1)
  1. BELIMUMAB [Suspect]
     Active Substance: BELIMUMAB
     Indication: Product used for unknown indication
     Dosage: UNK

REACTIONS (7)
  - Osteonecrosis [Unknown]
  - Rheumatoid arthritis [Unknown]
  - Osteonecrosis [Unknown]
  - Myocardial oedema [Unknown]
  - Inappropriate schedule of product administration [Unknown]
  - Fibromyalgia [Unknown]
  - Pleural effusion [Unknown]
